FAERS Safety Report 4703622-3 (Version None)
Quarter: 2005Q2

REPORT INFORMATION
  Report Type: 
  Country: None (occurrence: None)
  Receive Date: 20050628
  Receipt Date: 20050614
  Transmission Date: 20051028
  Serious: Yes (Death)
  Sender: FDA-Public Use
  Company Number: MEDI-0002858

PATIENT
  Age: 9 Month
  Sex: Female
  Weight: 5.1 kg

DRUGS (7)
  1. SYNAGIS [Suspect]
     Indication: ANTIVIRAL PROPHYLAXIS
     Dosage: 77 MG, 1 IN 30 D, INTRAMUSCULAR
     Route: 030
     Dates: start: 20041102, end: 20041202
  2. SYNAGIS [Suspect]
     Indication: ANTIVIRAL PROPHYLAXIS
     Dosage: 77 MG, 1 IN 30 D, INTRAMUSCULAR
     Route: 030
     Dates: start: 20041202
  3. SYNAGIS [Suspect]
  4. ALBUTEROL [Concomitant]
  5. FLOVENT [Concomitant]
  6. DIURIL (CHLOROTHIAZIDE) [Concomitant]
  7. SODIUM CHLORIDE 0.9% [Concomitant]

REACTIONS (1)
  - DEATH [None]
